FAERS Safety Report 13903883 (Version 1)
Quarter: 2017Q3

REPORT INFORMATION
  Report Type: Report from Study
  Country: US (occurrence: US)
  Receive Date: 20170824
  Receipt Date: 20170824
  Transmission Date: 20171127
  Serious: Yes (Hospitalization, Other)
  Sender: FDA-Public Use
  Company Number: US-BIOGEN-2017BI00423774

PATIENT
  Age: 47 Year
  Sex: Female

DRUGS (2)
  1. TECFIDERA [Suspect]
     Active Substance: DIMETHYL FUMARATE
     Dosage: MAINTENANCE DOSE
     Route: 048
     Dates: start: 20170602, end: 20170608
  2. TECFIDERA [Suspect]
     Active Substance: DIMETHYL FUMARATE
     Indication: MULTIPLE SCLEROSIS
     Dosage: STARTING DOSE
     Route: 048
     Dates: start: 20170526, end: 20170601

REACTIONS (9)
  - Head injury [Unknown]
  - Abdominal pain upper [Unknown]
  - Laceration [Unknown]
  - Heart rate increased [Not Recovered/Not Resolved]
  - Fall [Recovered/Resolved]
  - Eye contusion [Unknown]
  - Contusion [Unknown]
  - Face injury [Unknown]
  - Furuncle [Unknown]

NARRATIVE: CASE EVENT DATE: 20170606
